FAERS Safety Report 8273843-4 (Version None)
Quarter: 2012Q2

REPORT INFORMATION
  Report Type: 
  Country: None (occurrence: None)
  Receive Date: 20120411
  Receipt Date: 20120409
  Transmission Date: 20120825
  Serious: No
  Sender: FDA-Public Use
  Company Number: US-B.I. PHARMACEUTICALS,INC./RIDGEFIELD-2012-BP-03617BP

PATIENT
  Sex: Male
  Weight: 77.3 kg

DRUGS (6)
  1. PRADAXA [Suspect]
     Indication: ATRIAL FIBRILLATION
     Dosage: 300 MG
     Route: 048
     Dates: end: 20120222
  2. MULTAQ [Suspect]
     Indication: ATRIAL FIBRILLATION
     Dosage: 150 MG
     Route: 048
     Dates: start: 20110726, end: 20120217
  3. LEVOTHYROXINE SODIUM [Concomitant]
     Indication: HYPOTHYROIDISM
     Dosage: 100 MG
     Route: 048
  4. OMEPRAZOLE [Concomitant]
     Dosage: 20 MG
     Route: 048
  5. METOPROLOL TARTRATE [Concomitant]
     Indication: HEART RATE INCREASED
     Dosage: 25 MG
     Route: 048
  6. PRADAXA [Suspect]
     Dosage: 150 MG
     Route: 048

REACTIONS (1)
  - THROMBIN TIME ABNORMAL [None]
